FAERS Safety Report 5465556-9 (Version None)
Quarter: 2007Q3

REPORT INFORMATION
  Report Type: 
  Country: None (occurrence: None)
  Receive Date: 20070919
  Receipt Date: 20070627
  Transmission Date: 20080115
  Serious: Yes (Other)
  Sender: FDA-Public Use
  Company Number: LTI2007A00105

PATIENT
  Age: 61 Year
  Sex: Female

DRUGS (2)
  1. ACTOS [Suspect]
     Indication: TYPE 2 DIABETES MELLITUS
     Dosage: 1 DF (1 DF, 1 IN 1 D) ORAL
     Route: 048
  2. METFORMIN HCL [Concomitant]

REACTIONS (7)
  - CHOLELITHIASIS [None]
  - CONDITION AGGRAVATED [None]
  - DIABETES MELLITUS [None]
  - JAUNDICE CHOLESTATIC [None]
  - LYMPHADENOPATHY [None]
  - PANCREATIC CARCINOMA [None]
  - TUMOUR INVASION [None]
